FAERS Safety Report 10810816 (Version 1)
Quarter: 2015Q1

REPORT INFORMATION
  Report Type: Spontaneous
  Country: US (occurrence: None)
  Receive Date: 20150212
  Receipt Date: 20150212
  Transmission Date: 20150721
  Serious: No
  Sender: FDA-Public Use
  Company Number: None

PATIENT
  Age: 55 Year
  Sex: Female
  Weight: 50.8 kg

DRUGS (2)
  1. ESTRADIOL. [Suspect]
     Active Substance: ESTRADIOL
     Indication: ARTIFICIAL MENOPAUSE
     Dosage: 1 PATCH  TWICE WEEKLY APPLIED AS MEDICATED PATCH TO SKIN
     Dates: start: 20150206, end: 20150209
  2. ESTRADIOL. [Suspect]
     Active Substance: ESTRADIOL
     Dosage: 1 PATCH  TWICE WEEKLY APPLIED AS MEDICATED PATCH TO SKIN
     Dates: start: 20150206, end: 20150209

REACTIONS (6)
  - Dizziness [None]
  - Hot flush [None]
  - Product substitution issue [None]
  - Tremor [None]
  - Nausea [None]
  - Product quality issue [None]

NARRATIVE: CASE EVENT DATE: 20150206
